FAERS Safety Report 8835849 (Version 1)
Quarter: 2012Q4

REPORT INFORMATION
  Report Type: 
  Country: JP (occurrence: JP)
  Receive Date: 20121011
  Receipt Date: 20121011
  Transmission Date: 20130627
  Serious: Yes (Other)
  Sender: FDA-Public Use
  Company Number: JP-PFIZER INC-2012169380

PATIENT
  Age: 64 Year
  Sex: Male

DRUGS (14)
  1. ZOSYN [Suspect]
     Indication: SEPSIS
     Dosage: 4.5 g, 2x/day
     Route: 042
     Dates: start: 20120611, end: 20120617
  2. ZOSYN [Suspect]
     Dosage: 4.5 g, 1x/day
     Route: 042
     Dates: start: 20120618, end: 20120624
  3. FOSMICIN S [Concomitant]
     Dosage: 2g/Day
     Route: 041
     Dates: start: 20120608, end: 20120611
  4. KIDMIN [Concomitant]
     Dosage: 200 ml/day
     Route: 041
     Dates: start: 20120611, end: 20120623
  5. NEOLAMIN MULTI V [Concomitant]
     Dosage: 1 V/day
     Route: 041
     Dates: start: 20120611, end: 20120623
  6. ELEJECT [Concomitant]
     Dosage: 2 ml/day
     Route: 041
     Dates: start: 20120611, end: 20120617
  7. POTASSIUM CHLORIDE [Concomitant]
     Dosage: 20 mEq/day
     Route: 041
     Dates: start: 20120611, end: 20120617
  8. DEXTROSE [Concomitant]
     Dosage: 200mL/day
     Route: 041
     Dates: start: 20120611, end: 20120617
  9. FUTHAN [Concomitant]
     Dosage: 100 mg/day
     Route: 041
     Dates: start: 20120611, end: 20120617
  10. KENKETSU VENOGLOBULIN�IH [Concomitant]
     Dosage: 5 g/day
     Route: 042
     Dates: start: 20120611, end: 20120613
  11. NEUART [Concomitant]
     Dosage: 1500 IU/day
     Route: 042
     Dates: start: 20120611, end: 20120613
  12. GLUCOSE [Concomitant]
     Dosage: 200 ml/day
     Route: 041
     Dates: start: 20120611, end: 20120623
  13. GASTER [Concomitant]
     Dosage: 10 mg/day
     Route: 041
     Dates: start: 20120611, end: 20120617
  14. HICALIQ RF [Concomitant]
     Dosage: 500 ml/day
     Route: 041
     Dates: start: 20120612, end: 20120617

REACTIONS (2)
  - Enteritis infectious [Recovering/Resolving]
  - Pseudomembranous colitis [None]
